FAERS Safety Report 8341401-9 (Version None)
Quarter: 2012Q2

REPORT INFORMATION
  Report Type: 
  Country: None (occurrence: None)
  Receive Date: 20120507
  Receipt Date: 20120503
  Transmission Date: 20120825
  Serious: Yes (Other)
  Sender: FDA-Public Use
  Company Number: US-PFIZER INC-2012077939

PATIENT
  Sex: Male
  Weight: 122 kg

DRUGS (6)
  1. IBUPROFEN (ADVIL) [Suspect]
     Dosage: UNK
     Dates: start: 19900101
  2. NAPROXEN (ALEVE) [Suspect]
     Dosage: UNK
  3. IBUPROFEN (ADVIL) [Suspect]
     Dosage: UNK, 2X/DAY
  4. NAPROXEN SODIUM [Suspect]
     Dosage: UNK
  5. IBUPROFEN [Suspect]
     Dosage: UNK
  6. ACETYLSALICYLIC ACID SRT [Suspect]
     Dosage: UNK

REACTIONS (4)
  - HAEMORRHAGE [None]
  - HIP ARTHROPLASTY [None]
  - PAIN [None]
  - DRUG HYPERSENSITIVITY [None]
